FAERS Safety Report 8219144-1 (Version None)
Quarter: 2012Q1

REPORT INFORMATION
  Report Type: 
  Country: None (occurrence: None)
  Receive Date: 20120307
  Receipt Date: 20091229
  Transmission Date: 20120608
  Serious: No
  Sender: FDA-Public Use
  Company Number: PHEH2009US18740

PATIENT
  Age: 68 Year
  Sex: Male

DRUGS (16)
  1. VITAMIN E [Concomitant]
  2. GINSENG (GINSENG, GINSENG NOS) [Concomitant]
  3. AFINITOR [Suspect]
     Dosage: 10 MG, QD ; HALF TABLET QOD
     Dates: start: 20090101
  4. AFINITOR [Suspect]
     Dosage: 10 MG, QD ; HALF TABLET QOD
     Dates: start: 20091224
  5. TEA, GREEN (CAMELLIA SINENSIS, TEA, GREEN) [Concomitant]
  6. ATENOLOL [Concomitant]
  7. CRESTOR [Concomitant]
  8. FLUDROCORTISONE ACETATE [Concomitant]
  9. FLAXSEED OIL (LINUM USITATISSIMUM SEED OIL) [Concomitant]
  10. CALCIUM MAGNESIUM ZINC (CALCIUM, MAGNESIUM, ZINC) [Concomitant]
  11. VITAMIN D [Concomitant]
  12. HYDROCORTISONE [Suspect]
  13. ASCORBIC ACID [Suspect]
  14. LYCOPENE (LYCOPENE) [Concomitant]
  15. CASTOR OIL (RICINUS COMMUNIS OIL) [Concomitant]
  16. GARLIC (ALLIUM SATIVUM) [Concomitant]

REACTIONS (7)
  - GASTROINTESTINAL ULCER [None]
  - BLOOD SODIUM DECREASED [None]
  - STOMATITIS [None]
  - POLLAKIURIA [None]
  - DRUG DOSE OMISSION [None]
  - DIARRHOEA [None]
  - BLOOD CHOLESTEROL INCREASED [None]
